FAERS Safety Report 5113887-4 (Version None)
Quarter: 2006Q3

REPORT INFORMATION
  Report Type: 
  Country: None (occurrence: None)
  Receive Date: 20060925
  Receipt Date: 20060817
  Transmission Date: 20061208
  Serious: Yes (Death, Other)
  Sender: FDA-Public Use
  Company Number: US-PURDUE-USA_2006_0024968

PATIENT
  Age: 31 Year
  Sex: Male
  Weight: 117 kg

DRUGS (11)
  1. OXYCODONE HCL [Suspect]
     Indication: DRUG ABUSER
     Dosage: UNK, UNK
  2. HEROIN [Suspect]
     Indication: DRUG ABUSER
     Dosage: UNK, UNK
  3. COCAINE [Suspect]
     Indication: DRUG ABUSER
     Dosage: UNK, UNK
  4. TRAZODONE HCL [Suspect]
     Indication: DRUG ABUSER
     Dosage: UNK, UNK
  5. CLONAZEPAM [Suspect]
     Indication: DRUG ABUSER
     Dosage: UNK, UNK
  6. MORPHINE SULFATE [Suspect]
     Indication: DRUG ABUSER
     Dosage: UNK, UNK
  7. DIPHENHYDRAMINE HCL [Suspect]
     Indication: DRUG ABUSER
     Dosage: UNK, UNK
  8. GABAPENTIN [Suspect]
     Indication: DRUG ABUSER
     Dosage: UNK, UNK
  9. NICOTINE [Suspect]
     Indication: DRUG USE FOR UNKNOWN INDICATION
     Dosage: UNK, UNK
  10. CAFFEINE [Suspect]
     Indication: DRUG USE FOR UNKNOWN INDICATION
     Dosage: UNK, UNK
  11. CODEINE [Suspect]
     Indication: DRUG ABUSER
     Dosage: UNK, UNK

REACTIONS (4)
  - ARTERIOSCLEROSIS CORONARY ARTERY [None]
  - CORONARY ARTERY DISEASE [None]
  - MULTIPLE DRUG OVERDOSE ACCIDENTAL [None]
  - SUBSTANCE ABUSE [None]
